FAERS Safety Report 20362639 (Version 1)
Quarter: 2022Q1

REPORT INFORMATION
  Report Type: Spontaneous
  Country: US (occurrence: None)
  Receive Date: 20220120
  Receipt Date: 20220120
  Transmission Date: 20220423
  Serious: No
  Sender: FDA-Public Use
  Company Number: None

PATIENT
  Sex: Male
  Weight: 98.55 kg

DRUGS (2)
  1. FINASTERIDE [Suspect]
     Active Substance: FINASTERIDE
     Indication: Alopecia
     Dosage: FREQUENCY : DAILY;?
     Route: 048
     Dates: start: 20170815, end: 20170915
  2. FINASTERIDE [Suspect]
     Active Substance: FINASTERIDE
     Indication: Alopecia
     Dosage: OTHER QUANTITY : 0.25 TABLET(S);?FREQUENCY : DAILY;?
     Route: 048
     Dates: start: 20190831, end: 20201118

REACTIONS (15)
  - Erectile dysfunction [None]
  - Genital hypoaesthesia [None]
  - Hair growth abnormal [None]
  - Libido decreased [None]
  - Disturbance in attention [None]
  - Poor quality sleep [None]
  - Fatigue [None]
  - Anxiety [None]
  - Anhedonia [None]
  - Depression [None]
  - Stress [None]
  - Educational problem [None]
  - Obsessive-compulsive disorder [None]
  - Emotional disorder [None]
  - Suicidal ideation [None]
